FAERS Safety Report 7562439-5 (Version None)
Quarter: 2011Q2

REPORT INFORMATION
  Report Type: 
  Country: None (occurrence: None)
  Receive Date: 20110614
  Receipt Date: 20110609
  Transmission Date: 20111010
  Serious: Yes (Other)
  Sender: FDA-Public Use
  Company Number: CIP10003013

PATIENT
  Age: 61 Year
  Sex: Female

DRUGS (6)
  1. ACTONEL [Suspect]
     Dosage: 35 MG ONCE WEEKLY, ORAL
     Route: 048
     Dates: start: 20050101, end: 20100101
  2. CALTRATE /00108001/ (CALCIUM CARBONATE) [Concomitant]
  3. CRESTOR [Concomitant]
  4. PLAVIX [Concomitant]
  5. TOPROL-XL [Concomitant]
  6. BENICAR [Concomitant]

REACTIONS (16)
  - ABDOMINAL PAIN [None]
  - ARTHROPATHY [None]
  - JAW DISORDER [None]
  - DYSGEUSIA [None]
  - HAEMATOCHEZIA [None]
  - DECREASED APPETITE [None]
  - JOINT CREPITATION [None]
  - ARTHRALGIA [None]
  - LYMPHADENOPATHY [None]
  - HEADACHE [None]
  - GINGIVAL SWELLING [None]
  - DIARRHOEA [None]
  - PURULENT DISCHARGE [None]
  - TOOTH LOSS [None]
  - DYSPHAGIA [None]
  - GINGIVAL RECESSION [None]
